FAERS Safety Report 6175401-4 (Version None)
Quarter: 2009Q2

REPORT INFORMATION
  Report Type: 
  Country: None (occurrence: None)
  Receive Date: 20090429
  Receipt Date: 20090422
  Transmission Date: 20091009
  Serious: Yes (Other)
  Sender: FDA-Public Use
  Company Number: CHPA2009US08912

PATIENT
  Age: 74 Year
  Sex: Male
  Weight: 77.1 kg

DRUGS (1)
  1. NUPERCAINAL HEMORRHOIDAL/ANES OINTMENT (NCH)(CINCHOCAINE) OINTMENT [Suspect]
     Indication: HAEMORRHOIDS
     Dosage: QD, TOPICAL
     Route: 061

REACTIONS (2)
  - INTENTIONAL DRUG MISUSE [None]
  - PROSTATE CANCER [None]
